FAERS Safety Report 18910254 (Version 1)
Quarter: 2021Q1

REPORT INFORMATION
  Report Type: Spontaneous
  Country: US (occurrence: US)
  Receive Date: 20210217
  Receipt Date: 20210217
  Transmission Date: 20210420
  Serious: Yes (Death, Life-Threatening, Hospitalization)
  Sender: FDA-Public Use
  Company Number: None

PATIENT
  Age: 69 Year
  Sex: Female
  Weight: 69.3 kg

DRUGS (11)
  1. CARAFATE [Concomitant]
     Active Substance: SUCRALFATE
  2. VYXEOS [Suspect]
     Active Substance: CYTARABINE\DAUNORUBICIN
     Dosage: ?          OTHER FREQUENCY:3 DOSES ;?
     Dates: start: 20201125, end: 20201129
  3. SODIUM CHLORIDE. [Concomitant]
     Active Substance: SODIUM CHLORIDE
  4. VITAMIN D3 [Concomitant]
     Active Substance: CHOLECALCIFEROL
  5. PANTOPRAZOLE [Concomitant]
     Active Substance: PANTOPRAZOLE
  6. URSODIOL. [Concomitant]
     Active Substance: URSODIOL
  7. POSACONAZOLE [Concomitant]
     Active Substance: POSACONAZOLE
  8. BISACODYL. [Concomitant]
     Active Substance: BISACODYL
  9. ACYCLOVIR. [Concomitant]
     Active Substance: ACYCLOVIR
  10. MYLOTARG [Suspect]
     Active Substance: GEMTUZUMAB OZOGAMICIN
     Dosage: ?          OTHER FREQUENCY:2 DOSES ;?
     Route: 042
     Dates: start: 20201128, end: 20201201
  11. LEVOFLOXACIN. [Concomitant]
     Active Substance: LEVOFLOXACIN

REACTIONS (10)
  - Hypotension [None]
  - Acute kidney injury [None]
  - Sepsis [None]
  - Pancytopenia [None]
  - Transaminases increased [None]
  - Haemorrhage intracranial [None]
  - Cerebral haemorrhage [None]
  - Hypoxia [None]
  - Hydrocephalus [None]
  - Acute respiratory failure [None]

NARRATIVE: CASE EVENT DATE: 20201205
